APPROVED DRUG PRODUCT: RIFATER
Active Ingredient: ISONIAZID; PYRAZINAMIDE; RIFAMPIN
Strength: 50MG;300MG;120MG
Dosage Form/Route: TABLET;ORAL
Application: N050705 | Product #001
Applicant: SANOFI AVENTIS US LLC
Approved: May 31, 1994 | RLD: Yes | RS: No | Type: DISCN